FAERS Safety Report 8715506 (Version 2)
Quarter: 2015Q1

REPORT INFORMATION
  Report Type: Report from Study
  Country: US (occurrence: US)
  Receive Date: 20120809
  Receipt Date: 20150213
  Transmission Date: 20150721
  Serious: Yes (Other)
  Sender: FDA-Public Use
  Company Number: US-ROCHE-1097631

PATIENT
  Sex: Female

DRUGS (19)
  1. XOLAIR [Suspect]
     Active Substance: OMALIZUMAB
     Indication: ASTHMA
     Route: 058
     Dates: start: 2005
  2. ALBUTEROL. [Concomitant]
     Active Substance: ALBUTEROL
     Dosage: AS NEEDED
     Route: 065
  3. ESTER C (UNITED STATES) [Concomitant]
     Route: 065
  4. NYSTATIN. [Concomitant]
     Active Substance: NYSTATIN
     Indication: VULVOVAGINAL MYCOTIC INFECTION
     Dosage: AS NEEDED
     Route: 065
  5. QVAR [Suspect]
     Active Substance: BECLOMETHASONE DIPROPIONATE
     Indication: PRODUCT USED FOR UNKNOWN INDICATION
     Route: 065
  6. ULTRAM [Concomitant]
     Active Substance: TRAMADOL HYDROCHLORIDE
     Indication: PAIN
     Dosage: FREQUENCY -1 IN 4-6 HOUR, AS NEEDED
     Route: 065
  7. ZELNORM [Concomitant]
     Active Substance: TEGASEROD MALEATE
     Dosage: AS NEEDED
     Route: 065
  8. MECLIZINE [Concomitant]
     Active Substance: MECLIZINE\MECLIZINE HYDROCHLORIDE
     Route: 065
  9. SINGULAIR [Concomitant]
     Active Substance: MONTELUKAST SODIUM
     Route: 065
  10. PROTONIX (UNITED STATES) [Concomitant]
     Route: 065
  11. FORADIL [Concomitant]
     Active Substance: FORMOTEROL FUMARATE
  12. ATIVAN [Concomitant]
     Active Substance: LORAZEPAM
     Route: 065
  13. TRIAMCINOLONE [Concomitant]
     Active Substance: TRIAMCINOLONE
     Indication: VULVOVAGINAL MYCOTIC INFECTION
     Dosage: AS NEEDED
     Route: 065
  14. TRAMADOL [Concomitant]
     Active Substance: TRAMADOL
     Route: 065
  15. COMBIVENT [Concomitant]
     Active Substance: ALBUTEROL SULFATE\IPRATROPIUM BROMIDE
  16. EFFEXOR [Concomitant]
     Active Substance: VENLAFAXINE HYDROCHLORIDE
     Route: 065
  17. QVAR [Suspect]
     Active Substance: BECLOMETHASONE DIPROPIONATE
     Dosage: 1 PUFF
     Route: 065
  18. XANAX TAB [Concomitant]
     Route: 048
  19. FLEXERIL [Concomitant]
     Active Substance: CYCLOBENZAPRINE HYDROCHLORIDE
     Route: 048

REACTIONS (14)
  - Feeling abnormal [Unknown]
  - Depression [Unknown]
  - Anxiety [Unknown]
  - Unevaluable event [Unknown]
  - Back pain [Unknown]
  - Dizziness [Unknown]
  - Throat irritation [Unknown]
  - Food allergy [Unknown]
  - Cough [Unknown]
  - Irritability [Unknown]
  - Asthma [Unknown]
  - Infection [Unknown]
  - Fatigue [Unknown]
  - Chest discomfort [Unknown]
